FAERS Safety Report 6532514-2 (Version None)
Quarter: 2010Q1

REPORT INFORMATION
  Report Type: 
  Country: None (occurrence: None)
  Receive Date: 20100111
  Receipt Date: 20091230
  Transmission Date: 20100710
  Serious: No
  Sender: FDA-Public Use
  Company Number: US-B.I. PHARMACEUTICALS,INC./RIDGEFIELD-2010-BP-00019BP

PATIENT
  Sex: Female

DRUGS (9)
  1. SPIRIVA [Suspect]
     Indication: CHRONIC OBSTRUCTIVE PULMONARY DISEASE
     Dosage: 18 MCG
     Route: 055
     Dates: start: 20091204, end: 20091209
  2. ADVAIR DISKUS 100/50 [Concomitant]
     Indication: CHRONIC OBSTRUCTIVE PULMONARY DISEASE
     Route: 055
     Dates: start: 20070101
  3. XOPENEX [Concomitant]
     Indication: CHRONIC OBSTRUCTIVE PULMONARY DISEASE
     Route: 055
  4. TOPROL-XL [Concomitant]
     Indication: HEART RATE IRREGULAR
     Dates: start: 20060101
  5. LIPITOR [Concomitant]
     Indication: BLOOD CHOLESTEROL INCREASED
     Dates: start: 20060101
  6. NEXIUM [Concomitant]
     Indication: GASTROOESOPHAGEAL REFLUX DISEASE
     Dates: start: 20060101
  7. CYMBALTA [Concomitant]
     Indication: DEPRESSION
     Dates: start: 20040101
  8. CLONAZEPAM [Concomitant]
     Indication: ANXIETY
     Dates: start: 20020101
  9. VALTREX [Concomitant]
     Indication: RASH
     Dates: start: 20070101

REACTIONS (2)
  - DYSPHONIA [None]
  - LARYNGEAL OEDEMA [None]
